FAERS Safety Report 23931301 (Version 3)
Quarter: 2024Q4

REPORT INFORMATION
  Report Type: Spontaneous
  Country: AR (occurrence: AR)
  Receive Date: 20240603
  Receipt Date: 20241016
  Transmission Date: 20250115
  Serious: No
  Sender: JOHNSON AND JOHNSON
  Company Number: AR-JNJFOC-20240526227

PATIENT
  Age: 70 Year
  Sex: Male
  Weight: 76 kg

DRUGS (1)
  1. SIMPONI [Suspect]
     Active Substance: GOLIMUMAB
     Indication: Product used for unknown indication
     Dosage: STRENGTH: 50.00 MG / 0.50 ML
     Route: 058
     Dates: start: 2023

REACTIONS (4)
  - Product dose omission issue [Unknown]
  - Device issue [Unknown]
  - Bone pain [Unknown]
  - Gait inability [Unknown]

NARRATIVE: CASE EVENT DATE: 20240503
